FAERS Safety Report 10926283 (Version 1)
Quarter: 2015Q1

REPORT INFORMATION
  Report Type: Spontaneous
  Country: US (occurrence: None)
  Receive Date: 20150317
  Receipt Date: 20150317
  Transmission Date: 20150721
  Serious: Yes (Other)
  Sender: FDA-Public Use
  Company Number: None

PATIENT
  Age: 27 Year
  Sex: Female
  Weight: 151.5 kg

DRUGS (10)
  1. TRILIPIX [Concomitant]
     Active Substance: FENOFIBRIC ACID
  2. FETZIMA [Suspect]
     Active Substance: LEVOMILNACIPRAN HYDROCHLORIDE
     Indication: MAJOR DEPRESSION
     Dosage: TAKE 1 CAPSULE BY MOUTH DAILY?ONCE DAILY?TAKEN BY MOUTH
     Route: 048
     Dates: start: 20150105, end: 20150309
  3. BENICAR [Concomitant]
     Active Substance: OLMESARTAN MEDOXOMIL
  4. LYRICA [Concomitant]
     Active Substance: PREGABALIN
  5. HUMULIN U-500 [Concomitant]
  6. CRESTOR [Concomitant]
     Active Substance: ROSUVASTATIN CALCIUM
  7. ALLEGRA [Concomitant]
     Active Substance: FEXOFENADINE HYDROCHLORIDE
  8. AMBIEN CR [Concomitant]
     Active Substance: ZOLPIDEM TARTRATE
  9. XANAX [Concomitant]
     Active Substance: ALPRAZOLAM
  10. PRO-AIR ALBUTEROL INHALER [Concomitant]

REACTIONS (4)
  - Agoraphobia [None]
  - Panic attack [None]
  - Generalised anxiety disorder [None]
  - Social problem [None]

NARRATIVE: CASE EVENT DATE: 20150105
